FAERS Safety Report 5244074-7 (Version None)
Quarter: 2007Q1

REPORT INFORMATION
  Report Type: 
  Country: None (occurrence: None)
  Receive Date: 20070212
  Receipt Date: 20070126
  Transmission Date: 20070707
  Serious: Yes (Death, Other)
  Sender: FDA-Public Use
  Company Number: THYM-11110

PATIENT
  Age: 22 Month
  Sex: Female
  Weight: 14 kg

DRUGS (13)
  1. THYMOGLOBULIN [Suspect]
     Indication: BONE MARROW TRANSPLANT
     Dosage: 100 MG QD; IV
     Route: 042
     Dates: start: 20061010, end: 20061010
  2. BUSULFAN [Concomitant]
  3. CYCLOPHOSPHAMIDE [Concomitant]
  4. ALDURAZYME [Concomitant]
  5. DIPHENHYDRAMINE HCL [Concomitant]
  6. HYDROCORTISONE [Concomitant]
  7. ONDANSETRON [Concomitant]
  8. VANCOMYCIN HYDROCHLORIDE [Concomitant]
  9. DIPYRONE TAB [Concomitant]
  10. DIPHENYLHYDANTOIN [Concomitant]
  11. IMIPENEM [Concomitant]
  12. ACYCLOVIR [Concomitant]
  13. IBUPROFEN [Concomitant]

REACTIONS (3)
  - CYTOMEGALOVIRUS INFECTION [None]
  - ERYTHEMA MULTIFORME [None]
  - LYMPHOPROLIFERATIVE DISORDER [None]
